FAERS Safety Report 12944509 (Version 1)
Quarter: 2016Q4

REPORT INFORMATION
  Report Type: Spontaneous
  Country: US (occurrence: US)
  Receive Date: 20161115
  Receipt Date: 20161115
  Transmission Date: 20170207
  Serious: Yes (Disabling)
  Sender: FDA-Public Use
  Company Number: None

PATIENT
  Age: 73 Year
  Sex: Female
  Weight: 67 kg

DRUGS (5)
  1. ARMOUR THYROID MED [Concomitant]
  2. LEVOXYL [Suspect]
     Active Substance: LEVOTHYROXINE SODIUM
     Indication: THYROIDECTOMY
     Dosage: ?          QUANTITY:1 TABLET(S);?
     Route: 048
     Dates: start: 20161106, end: 20161110
  3. BAYER ASPIRIN [Concomitant]
     Active Substance: ASPIRIN
  4. ZRYTEC [Concomitant]
  5. LEVOXYL [Suspect]
     Active Substance: LEVOTHYROXINE SODIUM
     Indication: DRUG THERAPY
     Dosage: ?          QUANTITY:1 TABLET(S);?
     Route: 048
     Dates: start: 20161106, end: 20161110

REACTIONS (2)
  - Product formulation issue [None]
  - Manufacturing materials issue [None]

NARRATIVE: CASE EVENT DATE: 20161110
